FAERS Safety Report 6187388-9 (Version None)
Quarter: 2009Q2

REPORT INFORMATION
  Report Type: 
  Country: None (occurrence: None)
  Receive Date: 20090512
  Receipt Date: 20090428
  Transmission Date: 20091009
  Serious: Yes (Hospitalization)
  Sender: FDA-Public Use
  Company Number: B0573227A

PATIENT
  Sex: Male

DRUGS (3)
  1. PROPAFENONE HCL [Suspect]
     Indication: DRUG USE FOR UNKNOWN INDICATION
     Dosage: 300MG THREE TIMES PER DAY
     Route: 065
  2. MIDODRIN [Concomitant]
     Indication: ORTHOSTATIC HYPOTENSION
     Dosage: 2.5MG THREE TIMES PER DAY
     Route: 065
  3. WARFARIN SODIUM [Concomitant]
     Route: 065

REACTIONS (8)
  - CONVULSION [None]
  - ELECTROCARDIOGRAM QRS COMPLEX PROLONGED [None]
  - HYPOTENSION [None]
  - LETHARGY [None]
  - MENTAL IMPAIRMENT [None]
  - MICROANGIOPATHY [None]
  - OVERDOSE [None]
  - VENTRICULAR ARRHYTHMIA [None]
